FAERS Safety Report 23944565 (Version 1)
Quarter: 2024Q2

REPORT INFORMATION
  Report Type: Spontaneous
  Country: US (occurrence: US)
  Receive Date: 20240606
  Receipt Date: 20240606
  Transmission Date: 20240716
  Serious: Yes (Other)
  Sender: FDA-Public Use
  Company Number: US-SUN PHARMACEUTICAL INDUSTRIES LTD-2024R1-449929

PATIENT
  Age: 73 Year
  Sex: Male

DRUGS (1)
  1. LEVULAN KERASTICK [Suspect]
     Active Substance: AMINOLEVULINIC ACID HYDROCHLORIDE
     Indication: Actinic keratosis
     Dosage: UNK
     Route: 065
     Dates: start: 20240508

REACTIONS (4)
  - Loss of consciousness [Unknown]
  - Seizure [Unknown]
  - Blindness transient [Unknown]
  - Dizziness [Unknown]

NARRATIVE: CASE EVENT DATE: 20240509
